FAERS Safety Report 18522192 (Version 4)
Quarter: 2023Q1

REPORT INFORMATION
  Report Type: Report from Study
  Country: CA (occurrence: CA)
  Receive Date: 20201119
  Receipt Date: 20230117
  Transmission Date: 20230417
  Serious: Yes (Other)
  Sender: FDA-Public Use
  Company Number: CA-TAKEDA-2020TUS011462

PATIENT
  Age: 49 Year
  Sex: Female

DRUGS (5)
  1. VEDOLIZUMAB [Suspect]
     Active Substance: VEDOLIZUMAB
     Indication: Crohn^s disease
     Dosage: 300 MILLIGRAM
     Route: 042
     Dates: start: 20200214
  2. VEDOLIZUMAB [Suspect]
     Active Substance: VEDOLIZUMAB
     Dosage: 300 MILLIGRAM
     Route: 042
  3. VEDOLIZUMAB [Suspect]
     Active Substance: VEDOLIZUMAB
     Dosage: 300 MILLIGRAM
     Route: 042
  4. VEDOLIZUMAB [Suspect]
     Active Substance: VEDOLIZUMAB
     Dosage: 300 MILLIGRAM
     Route: 042
  5. VEDOLIZUMAB [Suspect]
     Active Substance: VEDOLIZUMAB
     Dosage: 300 MILLIGRAM
     Route: 042
     Dates: start: 20221104

REACTIONS (16)
  - Crohn^s disease [Not Recovered/Not Resolved]
  - Ocular discomfort [Unknown]
  - Eye pain [Unknown]
  - Neck pain [Unknown]
  - Feeling abnormal [Unknown]
  - Diarrhoea [Recovered/Resolved]
  - Arthropathy [Unknown]
  - Vision blurred [Unknown]
  - Muscular weakness [Unknown]
  - Muscle spasms [Unknown]
  - Abdominal distension [Not Recovered/Not Resolved]
  - Back pain [Unknown]
  - Headache [Unknown]
  - Pain in extremity [Unknown]
  - Fatigue [Unknown]
  - Therapeutic reaction time decreased [Unknown]

NARRATIVE: CASE EVENT DATE: 20200201
